FAERS Safety Report 5247682-2 (Version None)
Quarter: 2007Q1

REPORT INFORMATION
  Report Type: 
  Country: None (occurrence: None)
  Receive Date: 20070227
  Receipt Date: 20070219
  Transmission Date: 20070707
  Serious: Yes (Death, Other)
  Sender: FDA-Public Use
  Company Number: CH-ELI_LILLY_AND_COMPANY-CH200702004271

PATIENT
  Sex: Female

DRUGS (2)
  1. XIGRIS [Suspect]
     Dosage: UNK, UNKNOWN
     Route: 042
  2. XIGRIS [Suspect]
     Dosage: UNK, UNKNOWN
     Route: 042

REACTIONS (2)
  - HAEMORRHAGE [None]
  - INTESTINAL ISCHAEMIA [None]
